FAERS Safety Report 17580688 (Version 1)
Quarter: 2020Q1

REPORT INFORMATION
  Report Type: Spontaneous
  Country: GB (occurrence: GB)
  Receive Date: 20200325
  Receipt Date: 20200325
  Transmission Date: 20200409
  Serious: Yes (Other)
  Sender: FDA-Public Use
  Company Number: GB-INCYTE CORPORATION-2020IN002763

PATIENT

DRUGS (2)
  1. JAKAVI [Suspect]
     Active Substance: RUXOLITINIB
     Dosage: 20 MG
     Route: 065
     Dates: start: 2016, end: 2018
  2. JAKAVI [Suspect]
     Active Substance: RUXOLITINIB
     Indication: POLYCYTHAEMIA VERA
     Dosage: UNK (DOSE ADJUSTMENTS)
     Route: 065
     Dates: start: 2013, end: 2016

REACTIONS (2)
  - Skin squamous cell carcinoma metastatic [Unknown]
  - Second primary malignancy [Unknown]

NARRATIVE: CASE EVENT DATE: 2018
